FAERS Safety Report 15504065 (Version 1)
Quarter: 2018Q4

REPORT INFORMATION
  Report Type: Spontaneous
  Country: US (occurrence: US)
  Receive Date: 20181016
  Receipt Date: 20181016
  Transmission Date: 20190205
  Serious: No
  Sender: FDA-Public Use
  Company Number: US-AMGEN INC.-USASP2018132286

PATIENT
  Sex: Female

DRUGS (1)
  1. AIMOVIG [Suspect]
     Active Substance: ERENUMAB-AOOE
     Indication: MIGRAINE
     Dosage: UNK UNK, QMO
     Route: 065
     Dates: start: 2018

REACTIONS (7)
  - Asthenia [Unknown]
  - Cough [Unknown]
  - Gastritis [Unknown]
  - Dry mouth [Unknown]
  - Nausea [Unknown]
  - Throat irritation [Unknown]
  - Inflammation [Unknown]

NARRATIVE: CASE EVENT DATE: 2018
